FAERS Safety Report 15417375 (Version 1)
Quarter: 2018Q3

REPORT INFORMATION
  Report Type: Spontaneous
  Country: US (occurrence: US)
  Receive Date: 20180924
  Receipt Date: 20180924
  Transmission Date: 20181010
  Serious: No
  Sender: FDA-Public Use
  Company Number: US-ASTRAZENECA-2018SF10998

PATIENT
  Sex: Male

DRUGS (1)
  1. PULMICORT FLEXHALER [Suspect]
     Active Substance: BUDESONIDE
     Dosage: 90.0UG UNKNOWN
     Route: 055

REACTIONS (7)
  - Hypersensitivity [Unknown]
  - Intentional product misuse [Unknown]
  - Sensory loss [Unknown]
  - Device issue [Unknown]
  - Drug ineffective [Unknown]
  - Dyspnoea [Unknown]
  - Dysgeusia [Unknown]
